FAERS Safety Report 8314924-6 (Version None)
Quarter: 2012Q2

REPORT INFORMATION
  Report Type: 
  Country: None (occurrence: None)
  Receive Date: 20120426
  Receipt Date: 20120418
  Transmission Date: 20120825
  Serious: Yes (Hospitalization)
  Sender: FDA-Public Use
  Company Number: CA-JNJFOC-20120408528

PATIENT
  Sex: Male
  Weight: 76 kg

DRUGS (4)
  1. IMURAN [Concomitant]
     Route: 065
  2. CIPROFLOXACIN [Concomitant]
     Route: 065
  3. REMICADE [Suspect]
     Indication: CROHN'S DISEASE
     Dosage: APPROXIMATELY ON 14-NOV-2011
     Route: 042
     Dates: start: 20111101
  4. PREDNISONE TAB [Concomitant]
     Route: 065

REACTIONS (2)
  - FISTULA [None]
  - SMALL INTESTINAL RESECTION [None]
